FAERS Safety Report 20106363 (Version 2)
Quarter: 2022Q1

REPORT INFORMATION
  Report Type: Spontaneous
  Country: US (occurrence: US)
  Receive Date: 20211124
  Receipt Date: 20220102
  Transmission Date: 20220424
  Serious: No
  Sender: FDA-Public Use
  Company Number: US-AMGEN-USASP2021181312

PATIENT
  Age: 49 Year
  Sex: Female

DRUGS (1)
  1. REPATHA [Suspect]
     Active Substance: EVOLOCUMAB
     Indication: Hyperlipidaemia
     Dosage: 420 MILLIGRAM, QMO
     Route: 065
     Dates: start: 20180711

REACTIONS (2)
  - Device difficult to use [Unknown]
  - Underdose [Unknown]

NARRATIVE: CASE EVENT DATE: 20200101
